FAERS Safety Report 4414553-0 (Version None)
Quarter: 2004Q2

REPORT INFORMATION
  Report Type: 
  Country: None (occurrence: None)
  Receive Date: 20040621
  Receipt Date: 20040122
  Transmission Date: 20050107
  Serious: Yes (Death)
  Sender: FDA-Public Use
  Company Number: USA-2004-0012624

PATIENT
  Age: 47 Year
  Sex: Male

DRUGS (4)
  1. OXYCONTIN [Suspect]
     Indication: PAIN
  2. XANAX [Suspect]
     Indication: ANXIETY
  3. PHENERGAN [Concomitant]
  4. ELAVIL [Concomitant]

REACTIONS (1)
  - OVERDOSE [None]
